FAERS Safety Report 5280674-6 (Version None)
Quarter: 2007Q1

REPORT INFORMATION
  Report Type: 
  Country: None (occurrence: None)
  Receive Date: 20061221
  Receipt Date: 20060816
  Transmission Date: 20070707
  Serious: Yes (Hospitalization)
  Sender: FDA-Public Use
  Company Number: US-CVT-061622

PATIENT
  Age: 80 Year
  Sex: Male

DRUGS (8)
  1. RANEXA [Suspect]
     Dosage: 500 MG, BID, ORAL
     Route: 048
     Dates: start: 20060503, end: 20060801
  2. HYDROCHLOROTHIAZIDE [Concomitant]
  3. LOVENOX /00889602/ (HEPARIN-FRACTION, SODIUM SALT) [Concomitant]
  4. INSULIN /00030501/ (INSULIN) [Concomitant]
  5. PROCANBID [Concomitant]
  6. ROCEPHIN [Concomitant]
  7. XOPENEX [Concomitant]
  8. ZOCOR [Concomitant]

REACTIONS (2)
  - CARDIAC FAILURE [None]
  - PLEURAL EFFUSION [None]
